FAERS Safety Report 9332096 (Version 1)
Quarter: 2013Q2

REPORT INFORMATION
  Report Type: Spontaneous
  Country: US (occurrence: US)
  Receive Date: 20130606
  Receipt Date: 20130606
  Transmission Date: 20140414
  Serious: Yes (Other)
  Sender: FDA-Public Use
  Company Number: US-ELI_LILLY_AND_COMPANY-US201305009173

PATIENT
  Sex: Female

DRUGS (1)
  1. GEMCITABINE HYDROCHLORIDE [Suspect]
     Indication: CERVIX CARCINOMA
     Dosage: 800 MG/M2, OTHER

REACTIONS (4)
  - Gastrointestinal toxicity [Unknown]
  - Metabolic disorder [Unknown]
  - Deep vein thrombosis [Unknown]
  - Female genital tract fistula [Unknown]
